FAERS Safety Report 20911773 (Version 1)
Quarter: 2022Q2

REPORT INFORMATION
  Report Type: Spontaneous
  Country: IT (occurrence: IT)
  Receive Date: 20220603
  Receipt Date: 20220603
  Transmission Date: 20220720
  Serious: Yes (Other)
  Sender: FDA-Public Use
  Company Number: None

PATIENT
  Age: 92 Year
  Sex: Female

DRUGS (11)
  1. LOSARTAN POTASSIUM [Suspect]
     Active Substance: LOSARTAN POTASSIUM
     Indication: Hypertension
     Dosage: 50 MILLIGRAM, QD
     Route: 048
  2. FUROSEMIDE\SPIRONOLACTONE [Interacting]
     Active Substance: FUROSEMIDE\SPIRONOLACTONE
     Indication: Cardiomyopathy
     Dosage: 25 MILLIGRAM, QD
     Route: 048
  3. FUROSEMIDE\SPIRONOLACTONE [Interacting]
     Active Substance: FUROSEMIDE\SPIRONOLACTONE
     Indication: Cardiac failure
     Dosage: 25 MILLIGRAM, QD
     Route: 048
  4. FUROSEMIDE [Interacting]
     Active Substance: FUROSEMIDE
     Indication: Cardiomyopathy
     Dosage: 50 MILLIGRAM, QD
     Route: 048
  5. FUROSEMIDE [Interacting]
     Active Substance: FUROSEMIDE
     Indication: Hepatic failure
     Dosage: 50 MILLIGRAM, QD
     Route: 048
  6. ATENOLOL [Interacting]
     Active Substance: ATENOLOL
     Indication: Tachycardia
     Dosage: 50 MILLIGRAM, QD
     Route: 048
  7. LANSOPRAZOLE [Concomitant]
     Active Substance: LANSOPRAZOLE
     Dosage: UNK
  8. LEVETIRACETAM [Concomitant]
     Active Substance: LEVETIRACETAM
     Dosage: UNK
  9. TIMOLOL MALEATE\TRAVOPROST [Concomitant]
     Active Substance: TIMOLOL MALEATE\TRAVOPROST
     Dosage: (STRENGTH: 40 MICROGRAMS/ML + 5 MG/ML)
  10. TRAZODONE HYDROCHLORIDE [Concomitant]
     Active Substance: TRAZODONE HYDROCHLORIDE
     Dosage: UNK
  11. COUMADIN [Concomitant]
     Active Substance: WARFARIN SODIUM
     Dosage: UNK

REACTIONS (3)
  - Orthostatic hypotension [Recovering/Resolving]
  - Drug interaction [Recovering/Resolving]
  - Bradycardia [Recovering/Resolving]

NARRATIVE: CASE EVENT DATE: 20200314
